FAERS Safety Report 24567262 (Version 2)
Quarter: 2024Q4

REPORT INFORMATION
  Report Type: Spontaneous
  Country: CN (occurrence: CN)
  Receive Date: 20241030
  Receipt Date: 20241105
  Transmission Date: 20250114
  Serious: Yes (Hospitalization)
  Sender: STRIDES
  Company Number: None

PATIENT
  Age: 45 Year
  Sex: Female

DRUGS (7)
  1. METHOTREXATE [Suspect]
     Active Substance: METHOTREXATE
     Indication: Dermatomyositis
     Dosage: 10 MILLIGRAM, ONCE A WEEK
     Route: 065
  2. PREDNISOLONE [Suspect]
     Active Substance: PREDNISOLONE
     Indication: Dermatomyositis
     Dosage: UNK, OD (5-40 MG)
     Route: 065
  3. HYDROXYCHLOROQUINE [Suspect]
     Active Substance: HYDROXYCHLOROQUINE
     Indication: Dermatomyositis
     Dosage: 0.2 MILLIGRAM, EVERY 12 HRS (BID)
     Route: 065
     Dates: end: 2022
  4. HYDROXYCHLOROQUINE [Suspect]
     Active Substance: HYDROXYCHLOROQUINE
     Dosage: 0.1 MILLIGRAM, EVERY 12 HRS (BID)
     Route: 065
     Dates: end: 2022
  5. METHYLPREDNISOLONE [Suspect]
     Active Substance: METHYLPREDNISOLONE
     Indication: Dermatomyositis
     Dosage: 8 MILLIGRAM, OD
     Route: 065
     Dates: end: 2022
  6. METHYLPREDNISOLONE [Suspect]
     Active Substance: METHYLPREDNISOLONE
     Dosage: 1000 MILLIGRAM, OD
     Route: 065
     Dates: end: 2022
  7. THALIDOMIDE [Suspect]
     Active Substance: THALIDOMIDE
     Indication: Dermatomyositis
     Dosage: UNK, (SHORT PERIOD)
     Route: 065

REACTIONS (4)
  - Gerstmann^s syndrome [Recovered/Resolved]
  - Progressive multifocal leukoencephalopathy [Recovered/Resolved]
  - JC virus infection [Recovered/Resolved]
  - Off label use [Unknown]

NARRATIVE: CASE EVENT DATE: 20220101
